FAERS Safety Report 25989100 (Version 1)
Quarter: 2025Q4

REPORT INFORMATION
  Report Type: Report from Study
  Country: US (occurrence: US)
  Receive Date: 20251103
  Receipt Date: 20251103
  Transmission Date: 20260118
  Serious: No
  Sender: DR REDDYS
  Company Number: US-DRL-USA-USA/2025/10/015919

PATIENT
  Age: 13 Year
  Sex: Male
  Weight: 63.502 kg

DRUGS (2)
  1. ACCUTANE [Suspect]
     Active Substance: ISOTRETINOIN
     Indication: Acne
     Dosage: ONE PILL
     Route: 065
     Dates: start: 20250812
  2. ACCUTANE [Suspect]
     Active Substance: ISOTRETINOIN
     Dosage: HE PATIENT HAD STARTED WITH ONE PILL AND HAD DOUBLED THE DOSAGE-ONE PILL IN MORNING AND ONE PILL IN
     Route: 065
     Dates: start: 20250912, end: 20251012

REACTIONS (3)
  - Product use issue [Unknown]
  - Product dose omission issue [Unknown]
  - Circumstance or information capable of leading to medication error [Unknown]

NARRATIVE: CASE EVENT DATE: 20250912
